FAERS Safety Report 10089799 (Version 1)
Quarter: 2014Q2

REPORT INFORMATION
  Report Type: Spontaneous
  Country: US (occurrence: US)
  Receive Date: 20140421
  Receipt Date: 20140421
  Transmission Date: 20141212
  Serious: Yes (Hospitalization, Other)
  Sender: FDA-Public Use
  Company Number: US-ACTAVIS-2014-07460

PATIENT
  Age: 36 Year
  Sex: Female

DRUGS (2)
  1. PACLITAXEL (ATLLC) [Suspect]
     Indication: SEROUS CYSTADENOCARCINOMA OVARY
     Dosage: 60 MG/M2, UNKNOWN, ON DAY 1,8 AND 15
     Route: 033
  2. CARBOPLATIN (WATSON LABORATORIES) [Suspect]
     Indication: SEROUS CYSTADENOCARCINOMA OVARY
     Dosage: UNK, ON DAY 1 ON A 28-DAY CYCLE
     Route: 033

REACTIONS (6)
  - Pre-eclampsia [Recovered/Resolved]
  - Thrombocytopenia [Recovered/Resolved]
  - Anaemia [Recovered/Resolved]
  - Clostridium difficile colitis [Recovered/Resolved]
  - Nausea [Recovered/Resolved]
  - Vomiting [Recovered/Resolved]
